FAERS Safety Report 13765766 (Version 5)
Quarter: 2023Q2

REPORT INFORMATION
  Report Type: Report from Study
  Country: US (occurrence: US)
  Receive Date: 20170718
  Receipt Date: 20230518
  Transmission Date: 20230721
  Serious: Yes (Other)
  Sender: FDA-Public Use
  Company Number: US-JAZZ-2017-US-009196

PATIENT
  Sex: Female

DRUGS (14)
  1. XYREM [Suspect]
     Active Substance: SODIUM OXYBATE
     Indication: Narcolepsy
     Dosage: 2.25 GRAM, BID
     Route: 048
     Dates: start: 200812, end: 200812
  2. XYREM [Suspect]
     Active Substance: SODIUM OXYBATE
     Indication: Cataplexy
     Dosage: DOSE ADJUSTMENT
     Route: 048
     Dates: start: 200812, end: 201010
  3. XYREM [Suspect]
     Active Substance: SODIUM OXYBATE
     Indication: Somnolence
     Dosage: 4.5 GRAM, QD
     Route: 048
     Dates: start: 201010, end: 2010
  4. XYREM [Suspect]
     Active Substance: SODIUM OXYBATE
     Dosage: 2.25 GRAM, BID
     Route: 048
     Dates: start: 201505, end: 201505
  5. XYREM [Suspect]
     Active Substance: SODIUM OXYBATE
     Dosage: DOSE ADJUSTMENT
     Route: 048
     Dates: start: 201505, end: 201705
  6. XYREM [Suspect]
     Active Substance: SODIUM OXYBATE
     Dosage: 3.75 G, FIRST DOSE
     Route: 048
     Dates: start: 201705
  7. XYREM [Suspect]
     Active Substance: SODIUM OXYBATE
     Dosage: 2.25 G, SECOND DOSE
     Route: 048
     Dates: start: 201705
  8. METHOTREXATE [Concomitant]
     Active Substance: METHOTREXATE
     Dosage: 0000
     Dates: start: 20170622
  9. CETIRIZINE HYDROCHLORIDE [Concomitant]
     Active Substance: CETIRIZINE HYDROCHLORIDE
     Dosage: 0000
     Dates: start: 20170401
  10. ALLEGRA ALLERGY [Concomitant]
     Active Substance: FEXOFENADINE HYDROCHLORIDE
     Dosage: 0000
     Dates: start: 20170401
  11. CYMBALTA [Concomitant]
     Active Substance: DULOXETINE HYDROCHLORIDE
     Dosage: 0000
     Dates: start: 20230221
  12. ARMODAFINIL [Concomitant]
     Active Substance: ARMODAFINIL
     Dosage: 0000
     Dates: start: 20210328
  13. RINVOQ [Concomitant]
     Active Substance: UPADACITINIB
     Dosage: 0000
     Dates: start: 20230328
  14. CELEBREX [Concomitant]
     Active Substance: CELECOXIB
     Dosage: 0000
     Dates: start: 20210328

REACTIONS (2)
  - Rheumatoid arthritis [Not Recovered/Not Resolved]
  - Blepharitis [Unknown]

NARRATIVE: CASE EVENT DATE: 20150101
